FAERS Safety Report 17163952 (Version 1)
Quarter: 2019Q4

REPORT INFORMATION
  Report Type: Spontaneous
  Country: US (occurrence: US)
  Receive Date: 20191125
  Receipt Date: 20191125
  Transmission Date: 20200122
  Serious: No
  Sender: FDA-Public Use
  Company Number: None

PATIENT
  Sex: Female

DRUGS (1)
  1. XELJANZ XR [Suspect]
     Active Substance: TOFACITINIB CITRATE
     Indication: ILL-DEFINED DISORDER
     Route: 048
     Dates: start: 20190910

REACTIONS (3)
  - Diarrhoea [None]
  - Fatigue [None]
  - Mental impairment [None]
